FAERS Safety Report 6030045-X (Version None)
Quarter: 2008Q4

REPORT INFORMATION
  Report Type: 
  Country: None (occurrence: None)
  Receive Date: 20081222
  Receipt Date: 20080923
  Transmission Date: 20090506
  Serious: No
  Sender: FDA-Public Use
  Company Number: US-WYE-H06102108

PATIENT
  Age: 54 Year
  Sex: Male

DRUGS (6)
  1. PRISTIQ [Suspect]
     Indication: DEPRESSION
     Dosage: 50 MG 1X PER 1 DAY, ORAL
     Route: 048
     Dates: start: 20080920
  2. VENTOLIN (SALBUTAMOL SULFATE) [Concomitant]
  3. PROCARDIA XL [Concomitant]
  4. TOPROL-XL [Concomitant]
  5. OXYCONTIN [Concomitant]
  6. ADVAIR DISKUS 100/50 [Concomitant]

REACTIONS (5)
  - DECREASED INTEREST [None]
  - INSOMNIA [None]
  - NERVOUSNESS [None]
  - SEXUAL DYSFUNCTION [None]
  - TREMOR [None]
